FAERS Safety Report 23880542 (Version 1)
Quarter: 2024Q2

REPORT INFORMATION
  Report Type: Spontaneous
  Country: US (occurrence: US)
  Receive Date: 20240521
  Receipt Date: 20240521
  Transmission Date: 20240716
  Serious: Yes (Hospitalization)
  Sender: FDA-Public Use
  Company Number: US-ALEMBIC PHARMACUETICALS LIMITED-2024SCAL000611

PATIENT

DRUGS (2)
  1. TIZANIDINE HYDROCHLORIDE [Suspect]
     Active Substance: TIZANIDINE HYDROCHLORIDE
     Indication: Product used for unknown indication
     Dosage: 4 MILLIGRAM, TID
     Route: 048
  2. TIZANIDINE HYDROCHLORIDE [Suspect]
     Active Substance: TIZANIDINE HYDROCHLORIDE
     Dosage: 12 MILLIGRAM, QD
     Route: 048

REACTIONS (6)
  - Labile blood pressure [Unknown]
  - Presyncope [Unknown]
  - Hypotension [Unknown]
  - Withdrawal hypertension [Unknown]
  - Drug intolerance [Unknown]
  - Sedation [Unknown]
